FAERS Safety Report 25040579 (Version 4)
Quarter: 2025Q2

REPORT INFORMATION
  Report Type: Report from Study
  Country: US (occurrence: US)
  Receive Date: 20250305
  Receipt Date: 20250423
  Transmission Date: 20250717
  Serious: Yes (Death, Hospitalization)
  Sender: BAUSCH AND LOMB
  Company Number: US-BAUSCH-BL-2025-002942

PATIENT
  Age: 67 Year
  Sex: Female

DRUGS (2)
  1. XIFAXAN [Suspect]
     Active Substance: RIFAXIMIN
     Indication: Hepatic cirrhosis
     Route: 048
     Dates: start: 2023
  2. XIFAXAN [Suspect]
     Active Substance: RIFAXIMIN
     Indication: Metabolic dysfunction-associated steatohepatitis
     Route: 048
     Dates: start: 202502, end: 202503

REACTIONS (4)
  - Hepatic cirrhosis [Fatal]
  - Metabolic dysfunction-associated steatohepatitis [Fatal]
  - Humerus fracture [Unknown]
  - Hepatic encephalopathy [Unknown]
